FAERS Safety Report 5772867-6 (Version None)
Quarter: 2008Q2

REPORT INFORMATION
  Report Type: 
  Country: None (occurrence: None)
  Receive Date: 20080613
  Receipt Date: 20080603
  Transmission Date: 20081010
  Serious: Yes (Death, Other)
  Sender: FDA-Public Use
  Company Number: IE-PFIZER INC-2008042138

PATIENT
  Sex: Female

DRUGS (3)
  1. BEXTRA [Suspect]
     Indication: POSTOPERATIVE ANALGESIA
     Route: 048
     Dates: start: 20040914, end: 20040914
  2. FLOXACILLIN SODIUM [Concomitant]
  3. CLEXANE [Concomitant]

REACTIONS (2)
  - DEEP VEIN THROMBOSIS [None]
  - PULMONARY EMBOLISM [None]
